FAERS Safety Report 4616167-6 (Version None)
Quarter: 2005Q1

REPORT INFORMATION
  Report Type: 
  Country: None (occurrence: None)
  Receive Date: 20050321
  Receipt Date: 20020805
  Transmission Date: 20050727
  Serious: Yes (Hospitalization)
  Sender: FDA-Public Use
  Company Number: 4083

PATIENT
  Age: 65 Year
  Sex: Female

DRUGS (7)
  1. MORPHINE SULFATE [Suspect]
     Indication: PAIN
     Dosage: 10 MG FREQ UNK, PO
     Route: 048
     Dates: start: 20020712
  2. FRUSEMIDE [Concomitant]
  3. SIMVASTATIN [Concomitant]
  4. CIMETIDINE [Concomitant]
  5. SALICYLIC ACID [Concomitant]
  6. DIPYRIDAMOLE [Concomitant]
  7. THYROXINE SODIUM [Concomitant]

REACTIONS (4)
  - DEHYDRATION [None]
  - NAUSEA [None]
  - RENAL IMPAIRMENT [None]
  - VOMITING [None]
